FAERS Safety Report 15760691 (Version 1)
Quarter: 2018Q4

REPORT INFORMATION
  Report Type: Spontaneous
  Country: US (occurrence: US)
  Receive Date: 20181226
  Receipt Date: 20181226
  Transmission Date: 20190205
  Serious: No
  Sender: FDA-Public Use
  Company Number: US-PFIZER INC-2018314102

PATIENT
  Age: 42 Year
  Sex: Female

DRUGS (1)
  1. LYRICA [Suspect]
     Active Substance: PREGABALIN
     Dosage: 600 MG, 2X/DAY (TAKE 2 CAPS BY MOUTH 2 TIMES DAILY)
     Route: 048

REACTIONS (2)
  - Prescribed overdose [Unknown]
  - Drug hypersensitivity [Unknown]
